FAERS Safety Report 12866901 (Version 1)
Quarter: 2016Q4

REPORT INFORMATION
  Report Type: Spontaneous
  Country: CA (occurrence: CA)
  Receive Date: 20161020
  Receipt Date: 20161020
  Transmission Date: 20170207
  Serious: Yes (Hospitalization, Other)
  Sender: FDA-Public Use
  Company Number: CA-PFIZER INC-2016484476

PATIENT
  Age: 64 Year
  Sex: Male
  Weight: 84 kg

DRUGS (21)
  1. COVERSYL /00790702/ [Concomitant]
     Active Substance: PERINDOPRIL
     Dosage: 8 MG, 1X/DAY
     Route: 048
  2. PANTOLOC /01263204/ [Concomitant]
     Active Substance: PANTOPRAZOLE SODIUM
     Dosage: 40 MG, 1X/DAY
     Route: 048
  3. LEFLUNOMIDE. [Suspect]
     Active Substance: LEFLUNOMIDE
     Indication: RHEUMATOID ARTHRITIS
     Dosage: 20 MG, 1X/DAY
     Route: 048
     Dates: start: 201606
  4. PREDNISONE. [Concomitant]
     Active Substance: PREDNISONE
     Indication: ARTHRITIS
     Dosage: 50 MG, 1X/DAY
     Route: 048
     Dates: start: 20160426, end: 20160503
  5. PREDNISONE. [Concomitant]
     Active Substance: PREDNISONE
     Dosage: 30 MG, 1X/DAY
     Route: 048
  6. PREDNISONE. [Concomitant]
     Active Substance: PREDNISONE
     Dosage: 20 MG, 1X/DAY
     Route: 048
  7. DILTIAZEM. [Concomitant]
     Active Substance: DILTIAZEM
     Dosage: 240 MG, 1X/DAY
     Route: 048
  8. PREDNISONE. [Concomitant]
     Active Substance: PREDNISONE
     Dosage: 5 MG, 1X/DAY
     Route: 048
  9. PREDNISONE. [Concomitant]
     Active Substance: PREDNISONE
     Dosage: 25 MG, 1X/DAY
     Route: 048
  10. PREDNISONE. [Concomitant]
     Active Substance: PREDNISONE
     Dosage: 10 MG, 1X/DAY
     Route: 048
  11. INDAPAMIDE. [Concomitant]
     Active Substance: INDAPAMIDE
     Dosage: 1.25 MG, 1X/DAY
     Route: 048
  12. INSULIN /00646001/ [Concomitant]
     Active Substance: INSULIN NOS
     Dosage: 30 G, (1 SYRINGE EVERY 7 DAYS FOR 28 DAYS)
  13. ATORVASTATIN CALCIUM. [Suspect]
     Active Substance: ATORVASTATIN CALCIUM
     Dosage: 40 MG, 1X/DAY
     Route: 048
  14. ASPIRIN /00002701/ [Concomitant]
     Active Substance: ASPIRIN
     Dosage: 81 MG, 1X/DAY
     Route: 048
     Dates: start: 201606
  15. ELTROXIN [Concomitant]
     Active Substance: LEVOTHYROXINE
     Dosage: 100 UG, 1X/DAY
     Route: 048
  16. METHOTREXATE SODIUM. [Suspect]
     Active Substance: METHOTREXATE SODIUM
     Indication: RHEUMATOID ARTHRITIS
     Dosage: 25 MG, WEEKLY INJECTION
     Dates: start: 201506
  17. PREDNISONE. [Concomitant]
     Active Substance: PREDNISONE
     Dosage: 35 MG (7 X 5MG TABLETS), DAILY
     Route: 048
     Dates: start: 201607, end: 201608
  18. FOLIC ACID. [Concomitant]
     Active Substance: FOLIC ACID
     Dosage: 5 MG, 1X/DAY (28 DAYS)
     Route: 048
  19. PREDNISONE. [Concomitant]
     Active Substance: PREDNISONE
     Dosage: 15 MG, 1X/DAY
     Route: 048
  20. NIFEDIPINE. [Concomitant]
     Active Substance: NIFEDIPINE
     Dosage: 30 MG, 1X/DAY
     Route: 048
  21. ELIQUIS [Concomitant]
     Active Substance: APIXABAN
     Dosage: 5 MG, 1X/DAY
     Route: 048

REACTIONS (8)
  - Myocardial infarction [Unknown]
  - Poor quality sleep [Not Recovered/Not Resolved]
  - Fatigue [Not Recovered/Not Resolved]
  - Pneumonia [Unknown]
  - Condition aggravated [Unknown]
  - Drug ineffective [Unknown]
  - Alanine aminotransferase increased [Not Recovered/Not Resolved]
  - Atelectasis [Not Recovered/Not Resolved]

NARRATIVE: CASE EVENT DATE: 201606
